FAERS Safety Report 8929740 (Version 2)
Quarter: 2012Q4

REPORT INFORMATION
  Report Type: 
  Country: US (occurrence: US)
  Receive Date: 20121121
  Receipt Date: 20121212
  Transmission Date: 20130627
  Serious: Yes (Death, Hospitalization, Other)
  Sender: FDA-Public Use
  Company Number: US-ASTELLAS-1102284

PATIENT
  Sex: Female

DRUGS (2)
  1. TARCEVA [Suspect]
     Indication: BREAST CANCER FEMALE
     Route: 042
     Dates: start: 20050523, end: 20050629
  2. TARCEVA [Suspect]
     Indication: BREAST CANCER METASTATIC

REACTIONS (6)
  - Disease progression [Fatal]
  - General physical health deterioration [Unknown]
  - Abdominal pain [Unknown]
  - Deep vein thrombosis [Unknown]
  - Ascites [Unknown]
  - Small intestinal obstruction [Unknown]
